FAERS Safety Report 10587909 (Version 3)
Quarter: 2016Q1

REPORT INFORMATION
  Report Type: Report from Study
  Country: IT (occurrence: IT)
  Receive Date: 20141117
  Receipt Date: 20160315
  Transmission Date: 20160525
  Serious: Yes (Other)
  Sender: FDA-Public Use
  Company Number: IT-GILEAD-2014-0122249

PATIENT
  Age: 64 Year
  Sex: Female
  Weight: 67 kg

DRUGS (28)
  1. ACICLOVIR [Concomitant]
     Active Substance: ACYCLOVIR
     Indication: VIRAL INFECTION
     Dosage: UNK
     Route: 048
     Dates: start: 20141011, end: 20141021
  2. ALLOPURINOLO [Concomitant]
     Active Substance: ALLOPURINOL
     Dosage: UNK
     Route: 048
     Dates: start: 20141107, end: 20141113
  3. BACTRIM [Concomitant]
     Active Substance: SULFAMETHOXAZOLE\TRIMETHOPRIM
     Dosage: UNK
     Route: 048
     Dates: start: 20141011, end: 20141021
  4. FLEBOCORTID [Concomitant]
     Active Substance: HYDROCORTISONE SODIUM SUCCINATE
     Dosage: UNK
     Route: 042
     Dates: start: 20141009, end: 20141105
  5. DILATREND [Concomitant]
     Active Substance: CARVEDILOL
     Indication: HYPERTENSION
     Dosage: UNK
     Route: 048
     Dates: start: 1994, end: 20141127
  6. NORVASC [Concomitant]
     Active Substance: AMLODIPINE BESYLATE
     Indication: HYPERTENSION
     Dosage: UNK
     Route: 048
     Dates: start: 1994, end: 20141107
  7. LAMIVUDINA [Concomitant]
     Active Substance: LAMIVUDINE
     Dosage: UNK
     Route: 048
     Dates: start: 20141009, end: 20141127
  8. IDELALISIB [Suspect]
     Active Substance: IDELALISIB
     Indication: CHRONIC LYMPHOCYTIC LEUKAEMIA
     Dosage: 150 MG, BID
     Route: 048
     Dates: start: 20141009, end: 20141107
  9. BENDAMUSTINE [Suspect]
     Active Substance: BENDAMUSTINE
     Indication: CHRONIC LYMPHOCYTIC LEUKAEMIA
     Dosage: 154 MG, UNK
     Route: 042
     Dates: start: 20141009, end: 20141009
  10. TRIMETON [Concomitant]
     Active Substance: CHLORPHENIRAMINE MALEATE
     Dosage: 10 MG, UNK
     Route: 042
     Dates: start: 20141009, end: 20141105
  11. TICLOPIDINA [Concomitant]
     Active Substance: TICLOPIDINE
     Dosage: UNK
     Route: 048
     Dates: start: 2007, end: 20141127
  12. IDELALISIB [Suspect]
     Active Substance: IDELALISIB
     Dosage: 150 MG, BID
     Route: 048
     Dates: start: 20141115, end: 20141127
  13. RITUXIMAB [Suspect]
     Active Substance: RITUXIMAB
     Dosage: 855 MG, UNK
     Route: 042
     Dates: start: 20141105, end: 20141105
  14. LENTO KALIUM [Concomitant]
     Active Substance: POTASSIUM CHLORIDE
     Indication: HYPOKALAEMIA
     Route: 048
     Dates: start: 20141010, end: 20141127
  15. ACICLOVIR [Concomitant]
     Active Substance: ACYCLOVIR
     Dosage: UNK
     Route: 048
     Dates: start: 20141029, end: 20141127
  16. TACHIPIRINA [Concomitant]
     Active Substance: ACETAMINOPHEN
     Route: 048
     Dates: start: 20141021, end: 20141021
  17. BENDAMUSTINE [Suspect]
     Active Substance: BENDAMUSTINE
     Dosage: 154 MG, UNK
     Route: 042
     Dates: start: 20141010, end: 20141010
  18. ALLOPURINOLO [Concomitant]
     Active Substance: ALLOPURINOL
     Dosage: UNK
     Route: 048
     Dates: start: 201312, end: 20141008
  19. ZOFRAN [Concomitant]
     Active Substance: ONDANSETRON HYDROCHLORIDE
     Dosage: UNK
     Route: 042
     Dates: start: 20141009, end: 20141105
  20. LORAMYC [Concomitant]
     Active Substance: MICONAZOLE
     Dosage: UNK
     Route: 048
     Dates: start: 20141011, end: 20141118
  21. BENDAMUSTINE [Suspect]
     Active Substance: BENDAMUSTINE
     Dosage: 154 MG, UNK
     Route: 042
     Dates: start: 20141105, end: 20141105
  22. BENDAMUSTINE [Suspect]
     Active Substance: BENDAMUSTINE
     Dosage: 154 MG, UNK
     Route: 042
     Dates: start: 20141106, end: 20141106
  23. ALLOPURINOLO [Concomitant]
     Active Substance: ALLOPURINOL
     Dosage: UNK
     Route: 048
     Dates: start: 20141011, end: 20141021
  24. AERIUS [Concomitant]
     Active Substance: DESLORATADINE
     Indication: RASH
     Route: 048
     Dates: start: 20141022, end: 20141114
  25. RITUXIMAB [Suspect]
     Active Substance: RITUXIMAB
     Indication: CHRONIC LYMPHOCYTIC LEUKAEMIA
     Dosage: 641 MG, UNK
     Route: 042
     Dates: start: 20141009, end: 20141009
  26. PERFALGAN [Concomitant]
     Active Substance: ACETAMINOPHEN
     Dosage: UNK
     Route: 042
     Dates: start: 20141009, end: 20141105
  27. FASTURTEC [Concomitant]
     Active Substance: RASBURICASE
     Dosage: UNK
     Route: 042
     Dates: start: 20141009, end: 20141105
  28. PANTOPAN [Concomitant]
     Active Substance: PANTOPRAZOLE SODIUM
     Dosage: UNK
     Route: 048
     Dates: start: 1999, end: 20141127

REACTIONS (1)
  - Syncope [Recovered/Resolved]

NARRATIVE: CASE EVENT DATE: 20141107
